FAERS Safety Report 23651336 (Version 2)
Quarter: 2024Q2

REPORT INFORMATION
  Report Type: Spontaneous
  Country: US (occurrence: US)
  Receive Date: 20240320
  Receipt Date: 20240404
  Transmission Date: 20240716
  Serious: No
  Sender: FDA-Public Use
  Company Number: US-ALEMBIC PHARMACUETICALS LIMITED-2024SCAL000242

PATIENT

DRUGS (1)
  1. BIMATOPROST [Suspect]
     Active Substance: BIMATOPROST
     Indication: Madarosis
     Dosage: 0.03 PERCENT, EVERY NIGHT ON EACH EYELIDS USING AN APPLICATOR BRUSH
     Route: 061
     Dates: start: 202309, end: 20240305

REACTIONS (2)
  - Eye disorder [Not Recovered/Not Resolved]
  - Blepharal pigmentation [Recovered/Resolved]

NARRATIVE: CASE EVENT DATE: 20240305
